FAERS Safety Report 14601083 (Version 1)
Quarter: 2018Q1

REPORT INFORMATION
  Report Type: Spontaneous
  Country: US (occurrence: US)
  Receive Date: 20180305
  Receipt Date: 20180305
  Transmission Date: 20180509
  Serious: Yes (Death)
  Sender: FDA-Public Use
  Company Number: US-BEH-2018088380

PATIENT
  Age: 54 Year
  Sex: Female
  Weight: 68 kg

DRUGS (33)
  1. HIZENTRA [Suspect]
     Active Substance: HUMAN IMMUNOGLOBULIN G
     Indication: IMMUNODEFICIENCY
     Dosage: 16 G, QW
     Route: 058
     Dates: start: 20110207
  2. OXYCODONE [Concomitant]
     Active Substance: OXYCODONE
  3. DILTIAZEM. [Concomitant]
     Active Substance: DILTIAZEM
  4. GABAPENTIN. [Concomitant]
     Active Substance: GABAPENTIN
  5. VALTREX [Concomitant]
     Active Substance: VALACYCLOVIR HYDROCHLORIDE
  6. DURAGESIC [Concomitant]
     Active Substance: FENTANYL
  7. PREDNISONE                         /00044702/ [Concomitant]
     Active Substance: PREDNISONE
  8. VITAMIN D                          /00107901/ [Concomitant]
     Active Substance: ERGOCALCIFEROL
  9. PERCOCET                           /00446701/ [Concomitant]
     Active Substance: ACETAMINOPHEN\OXYCODONE HYDROCHLORIDE\OXYCODONE TEREPHTHALATE
  10. VAGIFEM [Concomitant]
     Active Substance: ESTRADIOL
  11. DIGESTIVE ENZYME [Concomitant]
     Active Substance: UNSPECIFIED INGREDIENT
  12. FLEXERIL [Concomitant]
     Active Substance: CYCLOBENZAPRINE HYDROCHLORIDE
  13. XANAX [Concomitant]
     Active Substance: ALPRAZOLAM
  14. CEFUROXIME. [Concomitant]
     Active Substance: CEFUROXIME
  15. COLCRYS [Concomitant]
     Active Substance: COLCHICINE
  16. HIZENTRA [Suspect]
     Active Substance: HUMAN IMMUNOGLOBULIN G
     Dosage: UNK
     Route: 058
  17. ACETAMINOPHEN. [Concomitant]
     Active Substance: ACETAMINOPHEN
  18. PROMETHAZINE [Concomitant]
     Active Substance: PROMETHAZINE\PROMETHAZINE HYDROCHLORIDE
  19. LORAZEPAM. [Concomitant]
     Active Substance: LORAZEPAM
  20. PYRIDIUM [Concomitant]
     Active Substance: PHENAZOPYRIDINE
  21. GINGER                             /01646602/ [Concomitant]
  22. QUETIAPINE. [Concomitant]
     Active Substance: QUETIAPINE
  23. AMBIEN [Concomitant]
     Active Substance: ZOLPIDEM TARTRATE
  24. HYDROCORTISONE. [Concomitant]
     Active Substance: HYDROCORTISONE
  25. PROBIOTIC                          /06395501/ [Concomitant]
     Active Substance: BIFIDOBACTERIUM ANIMALIS LACTIS
  26. VITAMIN C [Concomitant]
     Active Substance: ASCORBIC ACID
  27. EPINEPHRINE. [Concomitant]
     Active Substance: EPINEPHRINE
  28. FORTEO [Concomitant]
     Active Substance: TERIPARATIDE
  29. DIPHENHYDRAMINE. [Concomitant]
     Active Substance: DIPHENHYDRAMINE
  30. LIDOCAINE/PRILOCAINE [Concomitant]
     Active Substance: LIDOCAINE\PRILOCAINE
  31. SYNTHROID [Concomitant]
     Active Substance: LEVOTHYROXINE SODIUM
  32. INFED [Concomitant]
     Active Substance: IRON DEXTRAN
  33. VITAMIN B [Concomitant]
     Active Substance: VITAMIN B

REACTIONS (1)
  - Death [Fatal]

NARRATIVE: CASE EVENT DATE: 20180225
